FAERS Safety Report 8226031-1 (Version None)
Quarter: 2012Q1

REPORT INFORMATION
  Report Type: 
  Country: None (occurrence: None)
  Receive Date: 20120321
  Receipt Date: 20120315
  Transmission Date: 20120608
  Serious: No
  Sender: FDA-Public Use
  Company Number: US-PFIZER INC-2012068965

PATIENT
  Sex: Female
  Weight: 108 kg

DRUGS (6)
  1. PRISTIQ [Suspect]
     Indication: DEPRESSION
     Dosage: 50 MG, 1X/DAY
     Route: 048
     Dates: start: 20110101, end: 20110501
  2. PANTOPRAZOLE [Concomitant]
     Indication: ULCER HAEMORRHAGE
     Dosage: 40 MG, 1X/DAY
  3. LOSARTAN [Concomitant]
     Indication: HYPERTENSION
     Dosage: UNK
  4. TAMOXIFEN [Concomitant]
     Indication: BREAST CANCER
     Dosage: 20 MG, UNK
  5. PRISTIQ [Suspect]
     Dosage: 50 MG, 1X/DAY
     Route: 048
     Dates: start: 20120116
  6. FUROSEMIDE [Concomitant]
     Indication: HYPERTENSION
     Dosage: 40 MG, 1X/DAY

REACTIONS (3)
  - PRURITUS [None]
  - URTICARIA [None]
  - RASH [None]
